FAERS Safety Report 11359491 (Version 1)
Quarter: 2015Q3

REPORT INFORMATION
  Report Type: Spontaneous
  Country: US (occurrence: US)
  Receive Date: 20150807
  Receipt Date: 20150807
  Transmission Date: 20151125
  Serious: Yes (Other)
  Sender: FDA-Public Use
  Company Number: US-ASTRAZENECA-2015SE75121

PATIENT
  Sex: Female
  Weight: 70.3 kg

DRUGS (3)
  1. CELEBREX [Concomitant]
     Active Substance: CELECOXIB
     Indication: SCIATICA
     Route: 048
  2. PULMICORT FLEXHALER [Suspect]
     Active Substance: BUDESONIDE
     Indication: RESPIRATORY DISORDER
     Dosage: 1 PUFF TWICE A DAY
     Route: 055
  3. NEXIUM [Suspect]
     Active Substance: ESOMEPRAZOLE MAGNESIUM
     Indication: ABDOMINAL DISCOMFORT
     Dosage: 40 MG DAILY (GENERIC)
     Route: 048

REACTIONS (6)
  - Dysphonia [Unknown]
  - Product quality issue [Unknown]
  - Lymphoma [Unknown]
  - Breast cancer [Unknown]
  - Respiratory disorder [Unknown]
  - Intentional product misuse [Unknown]
